FAERS Safety Report 23925675 (Version 1)
Quarter: 2024Q2

REPORT INFORMATION
  Report Type: Spontaneous
  Country: CA (occurrence: CA)
  Receive Date: 20240531
  Receipt Date: 20240531
  Transmission Date: 20240715
  Serious: Yes (Other)
  Sender: FDA-Public Use
  Company Number: CA-MYLANLABS-2024M1047732

PATIENT
  Age: 43 Year
  Sex: Female

DRUGS (15)
  1. EPINEPHRINE [Suspect]
     Active Substance: EPINEPHRINE
     Indication: Pustule
     Dosage: UNK
     Route: 065
  2. EPINEPHRINE [Suspect]
     Active Substance: EPINEPHRINE
     Indication: Malaise
  3. EPINEPHRINE [Suspect]
     Active Substance: EPINEPHRINE
     Indication: Face oedema
  4. CEFADROXIL [Suspect]
     Active Substance: CEFADROXIL
     Indication: Rash erythematous
     Dosage: UNK
     Route: 065
  5. CEFADROXIL [Suspect]
     Active Substance: CEFADROXIL
     Indication: Malaise
     Dosage: UNK
     Route: 042
  6. CEFADROXIL [Suspect]
     Active Substance: CEFADROXIL
     Indication: Face oedema
  7. CEPHALEXIN [Suspect]
     Active Substance: CEPHALEXIN
     Indication: Rash erythematous
     Dosage: UNK
     Route: 065
  8. CEPHALEXIN [Suspect]
     Active Substance: CEPHALEXIN
     Indication: Malaise
     Dosage: UNK
     Route: 042
  9. CEPHALEXIN [Suspect]
     Active Substance: CEPHALEXIN
     Indication: Face oedema
  10. DOXYCYCLINE [Suspect]
     Active Substance: DOXYCYCLINE\DOXYCYCLINE HYCLATE
     Indication: Rash erythematous
     Dosage: UNK
     Route: 065
  11. DOXYCYCLINE [Suspect]
     Active Substance: DOXYCYCLINE\DOXYCYCLINE HYCLATE
     Indication: Malaise
     Dosage: UNK
     Route: 042
  12. DOXYCYCLINE [Suspect]
     Active Substance: DOXYCYCLINE\DOXYCYCLINE HYCLATE
     Indication: Face oedema
  13. EPINEPHRINE [Suspect]
     Active Substance: EPINEPHRINE
     Indication: Pustule
     Dosage: UNK
     Route: 042
  14. EPINEPHRINE [Suspect]
     Active Substance: EPINEPHRINE
     Indication: Malaise
  15. EPINEPHRINE [Suspect]
     Active Substance: EPINEPHRINE
     Indication: Face oedema

REACTIONS (1)
  - Therapy non-responder [Unknown]
